FAERS Safety Report 5067887-3 (Version None)
Quarter: 2006Q3

REPORT INFORMATION
  Report Type: 
  Country: None (occurrence: None)
  Receive Date: 20060731
  Receipt Date: 20060717
  Transmission Date: 20061208
  Serious: Yes (Death)
  Sender: FDA-Public Use
  Company Number: 163-21880-06070484

PATIENT
  Age: 90 Year
  Sex: Female

DRUGS (3)
  1. REVLIMID [Suspect]
     Indication: MYELODYSPLASTIC SYNDROME
     Dosage: 1 IN 1 D, ORAL
     Route: 048
     Dates: start: 20060602
  2. REVLIMID [Suspect]
     Indication: REFRACTORY ANAEMIA WITH AN EXCESS OF BLASTS
     Dosage: 1 IN 1 D, ORAL
     Route: 048
     Dates: start: 20060602
  3. REVLIMID [Suspect]
     Indication: WALDENSTROM'S MACROGLOBULINAEMIA
     Dosage: 1 IN 1 D, ORAL
     Route: 048
     Dates: start: 20060602

REACTIONS (3)
  - DISEASE PROGRESSION [None]
  - REFRACTORY ANAEMIA WITH AN EXCESS OF BLASTS [None]
  - WALDENSTROM'S MACROGLOBULINAEMIA [None]
